FAERS Safety Report 12089103 (Version 1)
Quarter: 2016Q1

REPORT INFORMATION
  Report Type: Spontaneous
  Country: US (occurrence: US)
  Receive Date: 20160218
  Receipt Date: 20160218
  Transmission Date: 20160526
  Serious: No
  Sender: FDA-Public Use
  Company Number: US-BIOGEN-2016BI00186921

PATIENT
  Sex: Female

DRUGS (1)
  1. TECFIDERA [Suspect]
     Active Substance: DIMETHYL FUMARATE
     Indication: MULTIPLE SCLEROSIS
     Route: 048
     Dates: start: 20141219

REACTIONS (7)
  - Nasopharyngitis [Not Recovered/Not Resolved]
  - Influenza [Unknown]
  - Somnolence [Not Recovered/Not Resolved]
  - Vomiting [Recovered/Resolved]
  - Lower respiratory tract infection [Unknown]
  - Visual acuity reduced [Unknown]
  - Asthenia [Not Recovered/Not Resolved]
